FAERS Safety Report 15961826 (Version 1)
Quarter: 2019Q1

REPORT INFORMATION
  Report Type: Spontaneous
  Country: US (occurrence: US)
  Receive Date: 20190123
  Receipt Date: 20190123
  Transmission Date: 20190417
  Serious: Yes (Hospitalization, Other)
  Sender: FDA-Public Use
  Company Number: None

PATIENT
  Age: 4 Year
  Sex: Male
  Weight: 21.3 kg

DRUGS (22)
  1. GLYCOPYRROLATE. [Concomitant]
     Active Substance: GLYCOPYRROLATE
  2. CETIRIZINE [Concomitant]
     Active Substance: CETIRIZINE HYDROCHLORIDE
  3. ETYHOMYCIN ETHYLSUCCINATE [Concomitant]
  4. ESLICARBAZEPINE [Concomitant]
     Active Substance: ESLICARBAZEPINE
  5. LACTOBACILLUS ACIDOPHILUS [Concomitant]
     Active Substance: LACTOBACILLUS ACIDOPHILUS
  6. NYSTATIN. [Concomitant]
     Active Substance: NYSTATIN
  7. RISPERIDONE. [Concomitant]
     Active Substance: RISPERIDONE
  8. POLY-VI-SOL [Concomitant]
     Active Substance: VITAMINS
  9. TRIAMCINOLONE [Concomitant]
     Active Substance: TRIAMCINOLONE
  10. NEXIUM [Concomitant]
     Active Substance: ESOMEPRAZOLE MAGNESIUM
  11. SENNA [Concomitant]
     Active Substance: SENNA LEAF\SENNOSIDES\SENNOSIDES A AND B
  12. FLUTICASONE-SALMETEROL [Concomitant]
  13. CANNABIDIOL ORAL SOLUTION 300MG/ML [Suspect]
     Active Substance: CANNABIDIOL
     Dates: start: 20160429
  14. MONTELUKAST [Concomitant]
     Active Substance: MONTELUKAST SODIUM
  15. FLUTICASONE. [Concomitant]
     Active Substance: FLUTICASONE
  16. CLOBAZAM. [Concomitant]
     Active Substance: CLOBAZAM
  17. LAMOTRIGINE. [Concomitant]
     Active Substance: LAMOTRIGINE
  18. POLYETHYLENE GLYCOL [Concomitant]
     Active Substance: POLYETHYLENE GLYCOLS
  19. LEVALBUTEROL. [Concomitant]
     Active Substance: LEVALBUTEROL
  20. BRIVARACETAM [Concomitant]
     Active Substance: BRIVARACETAM
  21. CLONIDINE. [Concomitant]
     Active Substance: CLONIDINE
  22. DIAZEPAM. [Concomitant]
     Active Substance: DIAZEPAM

REACTIONS (2)
  - Acute respiratory distress syndrome [None]
  - Pneumonia aspiration [None]

NARRATIVE: CASE EVENT DATE: 20190110
